FAERS Safety Report 18081868 (Version 2)
Quarter: 2021Q3

REPORT INFORMATION
  Report Type: Spontaneous
  Country: US (occurrence: US)
  Receive Date: 20200728
  Receipt Date: 20210818
  Transmission Date: 20211014
  Serious: Yes (Death, Other)
  Sender: FDA-Public Use
  Company Number: US-GILEAD-2020-0485406

PATIENT
  Age: 75 Year
  Sex: Female

DRUGS (3)
  1. TRUVADA [Suspect]
     Active Substance: EMTRICITABINE\TENOFOVIR DISOPROXIL FUMARATE
     Indication: HIV INFECTION
     Dosage: UNK
     Route: 048
     Dates: start: 2009, end: 2017
  2. ATRIPLA [Suspect]
     Active Substance: EFAVIRENZ\EMTRICITABINE\TENOFOVIR DISOPROXIL FUMARATE
     Indication: HIV INFECTION
     Dosage: UNK
     Route: 048
     Dates: start: 2006, end: 2017
  3. TRUVADA [Suspect]
     Active Substance: EMTRICITABINE\TENOFOVIR DISOPROXIL FUMARATE
     Dosage: UNK
     Route: 048
     Dates: start: 201210, end: 201503

REACTIONS (8)
  - Osteonecrosis [Unknown]
  - Bone loss [Unknown]
  - Tooth loss [Recovered/Resolved]
  - Osteopenia [Recovered/Resolved]
  - Chronic kidney disease [Recovered/Resolved]
  - Vitamin D deficiency [Recovered/Resolved]
  - Bone density decreased [Recovered/Resolved]
  - Death [Fatal]

NARRATIVE: CASE EVENT DATE: 2014
